FAERS Safety Report 9799812 (Version 3)
Quarter: 2015Q3

REPORT INFORMATION
  Report Type: Spontaneous
  Country: US (occurrence: US)
  Receive Date: 20140106
  Receipt Date: 20150806
  Transmission Date: 20151125
  Serious: No
  Sender: FDA-Public Use
  Company Number: US-GILEAD-2010-0032618

PATIENT
  Age: 57 Year
  Sex: Female

DRUGS (10)
  1. COUMADIN [Concomitant]
     Active Substance: WARFARIN SODIUM
  2. LETAIRIS [Suspect]
     Active Substance: AMBRISENTAN
     Route: 048
     Dates: start: 20100331
  3. LASIX [Concomitant]
     Active Substance: FUROSEMIDE
  4. LETAIRIS [Suspect]
     Active Substance: AMBRISENTAN
     Indication: PULMONARY HYPERTENSION
     Route: 048
     Dates: start: 20090925
  5. REVATIO [Concomitant]
     Active Substance: SILDENAFIL CITRATE
  6. ATENOLOL. [Concomitant]
     Active Substance: ATENOLOL
  7. AMBIEN [Concomitant]
     Active Substance: ZOLPIDEM TARTRATE
  8. KCL [Concomitant]
     Active Substance: POTASSIUM CHLORIDE
  9. PRAVASTATIN [Concomitant]
     Active Substance: PRAVASTATIN\PRAVASTATIN SODIUM
  10. LETAIRIS [Suspect]
     Active Substance: AMBRISENTAN
     Route: 048
     Dates: start: 20101013

REACTIONS (1)
  - Hepatic enzyme increased [Unknown]

NARRATIVE: CASE EVENT DATE: 20101013
